FAERS Safety Report 10912255 (Version 3)
Quarter: 2015Q2

REPORT INFORMATION
  Report Type: Spontaneous
  Country: FR (occurrence: None)
  Receive Date: 20150310
  Receipt Date: 20150423
  Transmission Date: 20150821
  Serious: Yes (Death, Hospitalization, Disabling)
  Sender: FDA-Public Use
  Company Number: 2770407

PATIENT
  Age: 57 Year
  Sex: Female

DRUGS (3)
  1. HERCEPTIN [Suspect]
     Active Substance: TRASTUZUMAB
     Indication: INVASIVE DUCTAL BREAST CARCINOMA
     Route: 041
     Dates: start: 20150130
  2. DOCETAXEL. [Suspect]
     Active Substance: DOCETAXEL
     Indication: INVASIVE DUCTAL BREAST CARCINOMA
     Route: 041
     Dates: start: 20150130
  3. PERTUZUMAB [Suspect]
     Active Substance: PERTUZUMAB
     Indication: INVASIVE DUCTAL BREAST CARCINOMA
     Route: 041
     Dates: start: 20150130

REACTIONS (20)
  - Ascites [None]
  - Respiratory acidosis [None]
  - Pleural effusion [None]
  - Multi-organ failure [None]
  - Altered state of consciousness [None]
  - Hypocalcaemia [None]
  - Blood lactate dehydrogenase increased [None]
  - Shock [None]
  - Abnormal behaviour [None]
  - Somnolence [None]
  - Heart rate increased [None]
  - Blood uric acid increased [None]
  - Toxicity to various agents [None]
  - Tumour lysis syndrome [None]
  - Periportal oedema [None]
  - Breast cancer metastatic [None]
  - Malignant neoplasm progression [None]
  - Agranulocytosis [None]
  - Haemodynamic instability [None]
  - Metabolic acidosis [None]

NARRATIVE: CASE EVENT DATE: 20150209
